FAERS Safety Report 7450082-8 (Version None)
Quarter: 2011Q2

REPORT INFORMATION
  Report Type: 
  Country: None (occurrence: None)
  Receive Date: 20110502
  Receipt Date: 20100420
  Transmission Date: 20111010
  Serious: No
  Sender: FDA-Public Use
  Company Number: US-BAYER-201021111NA

PATIENT
  Sex: Female

DRUGS (3)
  1. YAZ [Suspect]
     Indication: MENORRHAGIA
     Dosage: 1 DF, QD
     Route: 048
     Dates: start: 20090901, end: 20100101
  2. YAZ [Suspect]
     Indication: PREMENSTRUAL SYNDROME
     Dosage: 1 DF, TID
     Route: 048
     Dates: start: 20100101, end: 20100101
  3. YAZ [Suspect]
     Dosage: 1 DF, QD
     Route: 048
     Dates: start: 20100101

REACTIONS (1)
  - MENORRHAGIA [None]
